FAERS Safety Report 9939918 (Version 1)
Quarter: 2014Q1

REPORT INFORMATION
  Report Type: Report from Study
  Country: US (occurrence: US)
  Receive Date: 20140303
  Receipt Date: 20140303
  Transmission Date: 20141002
  Serious: Yes (Other)
  Sender: FDA-Public Use
  Company Number: US-ABBVIE-13P-163-1033251-00

PATIENT
  Age: 71 Year
  Sex: Female

DRUGS (9)
  1. HUMIRA [Suspect]
     Indication: RHEUMATOID ARTHRITIS
     Dates: start: 200404
  2. HUMIRA [Suspect]
  3. HUMIRA [Suspect]
  4. LEVOTHYROXINE [Concomitant]
     Indication: HYPOTHYROIDISM
  5. ATENOLOL [Concomitant]
     Indication: HYPERTENSION
  6. NEXIUM [Concomitant]
     Indication: GASTROOESOPHAGEAL REFLUX DISEASE
     Dosage: DAILY
  7. PROZAC [Concomitant]
     Indication: DEPRESSION
  8. MULTIPLE VITAMIN [Concomitant]
     Indication: PRODUCT USED FOR UNKNOWN INDICATION
     Dosage: 2 DAILY
  9. IBUPROFEN [Concomitant]
     Indication: PRODUCT USED FOR UNKNOWN INDICATION

REACTIONS (2)
  - Toe operation [Not Recovered/Not Resolved]
  - Toe operation [Unknown]
